FAERS Safety Report 6483646-9 (Version None)
Quarter: 2009Q4

REPORT INFORMATION
  Report Type: 
  Country: None (occurrence: None)
  Receive Date: 20091209
  Receipt Date: 20091207
  Transmission Date: 20100525
  Serious: Yes (Death)
  Sender: FDA-Public Use
  Company Number: PHEH2009US17341

PATIENT
  Sex: Female

DRUGS (1)
  1. EXJADE [Suspect]
     Indication: HAEMOGLOBIN C DISEASE
     Dosage: 1000 MG, QD
     Dates: start: 20090403, end: 20091102

REACTIONS (1)
  - ARRHYTHMIA [None]
